FAERS Safety Report 6773927-3 (Version None)
Quarter: 2010Q2

REPORT INFORMATION
  Report Type: 
  Country: None (occurrence: None)
  Receive Date: 20100615
  Receipt Date: 20100615
  Transmission Date: 20101027
  Serious: Yes (Other)
  Sender: FDA-Public Use
  Company Number: None

PATIENT
  Age: 45 Year
  Sex: Female

DRUGS (6)
  1. TOPAMAX [Suspect]
     Indication: BIPOLAR DISORDER
     Dosage: 300 MG 1/2 AM AND ONCE HS
     Dates: start: 20100319
  2. TOPAMAX [Suspect]
     Indication: SCHIZOAFFECTIVE DISORDER
     Dosage: 300 MG 1/2 AM AND ONCE HS
     Dates: start: 20100319
  3. DOXEPIN HCL [Concomitant]
  4. AMBIEN [Concomitant]
  5. TRILEPTAL [Concomitant]
  6. CYMBALTA [Concomitant]

REACTIONS (7)
  - ABNORMAL BEHAVIOUR [None]
  - AGGRESSION [None]
  - AGITATION [None]
  - ANGER [None]
  - HYPERSENSITIVITY [None]
  - PRODUCT SUBSTITUTION ISSUE [None]
  - THERAPEUTIC RESPONSE DECREASED [None]
